FAERS Safety Report 25500313 (Version 1)
Quarter: 2025Q3

REPORT INFORMATION
  Report Type: Spontaneous
  Country: EU (occurrence: EU)
  Receive Date: 20250701
  Receipt Date: 20250701
  Transmission Date: 20251021
  Serious: Yes (Other)
  Sender: AUROBINDO
  Company Number: EU-MLMSERVICE-20250602-PI531829-00034-1

PATIENT
  Age: 72 Year
  Sex: Female

DRUGS (4)
  1. AMIODARONE [Suspect]
     Active Substance: AMIODARONE
     Indication: Atrial fibrillation
     Route: 065
  2. EDOXABAN [Concomitant]
     Active Substance: EDOXABAN
     Indication: Atrial fibrillation
     Route: 065
  3. BIVALIRUDIN [Concomitant]
     Active Substance: BIVALIRUDIN
     Indication: Atrial fibrillation
     Route: 040
  4. BIVALIRUDIN [Concomitant]
     Active Substance: BIVALIRUDIN
     Route: 040

REACTIONS (2)
  - Corneal deposits [Unknown]
  - Drug ineffective [Unknown]
